FAERS Safety Report 23011039 (Version 4)
Quarter: 2023Q4

REPORT INFORMATION
  Report Type: Report from Study
  Country: IT (occurrence: IT)
  Receive Date: 20230929
  Receipt Date: 20231010
  Transmission Date: 20240110
  Serious: Yes (Hospitalization, Other)
  Sender: FDA-Public Use
  Company Number: IT-ABBVIE-5426591

PATIENT
  Age: 73 Year
  Sex: Male

DRUGS (2)
  1. CARBIDOPA\LEVODOPA [Suspect]
     Active Substance: CARBIDOPA\LEVODOPA
     Indication: Parkinson^s disease
     Dosage: DAILY DOSE (MG): 1280; PUMP SETTING: MD: 9+3; CR: 3,5 (14H); ED: 3
     Route: 050
     Dates: start: 20190521
  2. CARBIDOPA\LEVODOPA [Suspect]
     Active Substance: CARBIDOPA\LEVODOPA

REACTIONS (3)
  - Volvulus [Recovered/Resolved]
  - Intestinal ischaemia [Recovered/Resolved]
  - Device physical property issue [Unknown]

NARRATIVE: CASE EVENT DATE: 20230901
